FAERS Safety Report 9730839 (Version 1)
Quarter: 2013Q4

REPORT INFORMATION
  Report Type: Spontaneous
  Country: BE (occurrence: BE)
  Receive Date: 20131203
  Receipt Date: 20131203
  Transmission Date: 20140711
  Serious: Yes (Death)
  Sender: FDA-Public Use
  Company Number: BE-BEH-2013039139

PATIENT
  Age: 85 Year
  Sex: Male

DRUGS (1)
  1. HIZENTRA [Suspect]
     Dosage: WEEKLY,  DOSE STOP DAY ON ??-NOV-2013
     Route: 058

REACTIONS (1)
  - Death [Fatal]
